FAERS Safety Report 9316383 (Version 1)
Quarter: 2013Q1

REPORT INFORMATION
  Report Type: Spontaneous
  Country: US (occurrence: None)
  Receive Date: 20121115
  Receipt Date: 20121115
  Transmission Date: 20140127
  Serious: Yes (Hospitalization)
  Sender: FDA-Public Use
  Company Number: 137119

PATIENT
  Age: 35 Year
  Sex: Male

DRUGS (1)
  1. DAUNORUBICIN HCL [Suspect]
     Indication: ACUTE MYELOID LEUKAEMIA
     Dosage: TOTAL
     Route: 042
     Dates: start: 20120603

REACTIONS (16)
  - Dehydration [None]
  - Hypotension [None]
  - Arthralgia [None]
  - Renal impairment [None]
  - Diarrhoea [None]
  - Blood bilirubin increased [None]
  - Caecitis [None]
  - Mucosal inflammation [None]
  - Decreased appetite [None]
  - Pancytopenia [None]
  - Pyrexia [None]
  - Staphylococcal skin infection [None]
  - Platelet count decreased [None]
  - Anaemia [None]
  - Febrile neutropenia [None]
  - Colitis [None]
